FAERS Safety Report 5008852-1 (Version None)
Quarter: 2006Q2

REPORT INFORMATION
  Report Type: 
  Country: None (occurrence: None)
  Receive Date: 20060404
  Receipt Date: 20051031
  Transmission Date: 20061013
  Serious: No
  Sender: FDA-Public Use
  Company Number: USA0511112530

PATIENT
  Age: 29 Year
  Sex: Female

DRUGS (1)
  1. CYMBALTA [Suspect]
     Indication: DEPRESSION
     Dosage: 30 MG
     Dates: start: 20050901

REACTIONS (4)
  - ANXIETY [None]
  - BODY TEMPERATURE FLUCTUATION [None]
  - HYPERHIDROSIS [None]
  - TREMOR [None]
